FAERS Safety Report 5620522-5 (Version None)
Quarter: 2008Q1

REPORT INFORMATION
  Report Type: 
  Country: None (occurrence: None)
  Receive Date: 20080208
  Receipt Date: 20080111
  Transmission Date: 20080703
  Serious: No
  Sender: FDA-Public Use
  Company Number: US-BOEHRINGER INGELHEIM GMBH, GERMANY-2008-BP-00569BP

PATIENT
  Age: 71 Year
  Sex: Male

DRUGS (4)
  1. COMBIVENT [Suspect]
     Indication: CHRONIC OBSTRUCTIVE PULMONARY DISEASE
     Route: 055
     Dates: start: 20060101
  2. COMBIVENT [Suspect]
     Indication: WHEEZING
  3. COMBIVENT [Suspect]
     Indication: DYSPNOEA
  4. THEOPHYLLINE [Concomitant]
     Indication: WHEEZING
     Route: 048

REACTIONS (1)
  - DRUG INEFFECTIVE [None]
